FAERS Safety Report 5338319-2 (Version None)
Quarter: 2007Q2

REPORT INFORMATION
  Report Type: 
  Country: None (occurrence: None)
  Receive Date: 20070405
  Receipt Date: 20061120
  Transmission Date: 20071010
  Serious: No
  Sender: FDA-Public Use
  Company Number: US200611003926

PATIENT
  Sex: Male

DRUGS (5)
  1. CYMBALTA [Suspect]
     Indication: TENSION
     Dosage: 20 MG ORAL
     Route: 048
     Dates: start: 20061117
  2. TIMOPIC (TIMOLOL MALEATE) [Concomitant]
  3. PROTONIX [Concomitant]
  4. NASONEX [Concomitant]
  5. MULTIVITAMIN ^LAPPE^ (VITAMINS NOS) [Concomitant]

REACTIONS (2)
  - FLATULENCE [None]
  - HEADACHE [None]
